FAERS Safety Report 7373936-X (Version None)
Quarter: 2011Q1

REPORT INFORMATION
  Report Type: 
  Country: None (occurrence: None)
  Receive Date: 20110325
  Receipt Date: 20110322
  Transmission Date: 20110831
  Serious: Yes (Other)
  Sender: FDA-Public Use
  Company Number: US-PFIZER INC-2011063262

PATIENT

DRUGS (1)
  1. GEODON [Suspect]
     Dosage: 40 MG, UNK
     Route: 030

REACTIONS (1)
  - AGITATION [None]
